FAERS Safety Report 19279115 (Version 8)
Quarter: 2023Q2

REPORT INFORMATION
  Report Type: Report from Study
  Country: US (occurrence: None)
  Receive Date: 20210520
  Receipt Date: 20230410
  Transmission Date: 20230722
  Serious: Yes (Life-Threatening, Hospitalization)
  Sender: FDA-Public Use
  Company Number: US-ROCHE-2831735

PATIENT
  Age: 51 Year
  Sex: Female
  Weight: 97.5 kg

DRUGS (9)
  1. VENETOCLAX [Suspect]
     Active Substance: VENETOCLAX
     Indication: Chronic lymphocytic leukaemia
     Dosage: ON DAYS 1-7, CYCLE 3, THEN DOSE ESCALATION?LAST ADMINISTERED: 29/OCT/2020, 30/MAR/2021
     Route: 048
     Dates: start: 20200903
  2. VENETOCLAX [Suspect]
     Active Substance: VENETOCLAX
     Dosage: ON DAYS 8-14, CYCLE 3
     Route: 048
  3. VENETOCLAX [Suspect]
     Active Substance: VENETOCLAX
     Dosage: ON DAYS 15-21, CYCLE 3
     Route: 048
  4. VENETOCLAX [Suspect]
     Active Substance: VENETOCLAX
     Dosage: ON DAYS 22-28, CYCLE 3
     Route: 048
  5. VENETOCLAX [Suspect]
     Active Substance: VENETOCLAX
     Dosage: ON DAYS 1-28, CYCLES 4-14
     Route: 048
  6. OBINUTUZUMAB [Suspect]
     Active Substance: OBINUTUZUMAB
     Indication: Chronic lymphocytic leukaemia
     Dosage: ON DAY 1, CYCLE 1 THEN DOSE ESCALATION?LAST ADMINISTERED: 21/JAN/2021
     Route: 042
     Dates: start: 20200903
  7. OBINUTUZUMAB [Suspect]
     Active Substance: OBINUTUZUMAB
     Dosage: ON DAY 2, CYCLE 1
     Route: 042
  8. OBINUTUZUMAB [Suspect]
     Active Substance: OBINUTUZUMAB
     Dosage: ON DAY 8, CYCLE 1; ON DAY 15, CYCLE 1; ON DAY 1, CYCLE 2-6
     Route: 042
  9. IBRUTINIB [Suspect]
     Active Substance: IBRUTINIB
     Indication: Chronic lymphocytic leukaemia
     Dosage: ON DAYS 1-28, CYCLES 1-19?LAST ADMINISTERED: 30/MAR/2021
     Route: 048
     Dates: start: 20200903

REACTIONS (2)
  - COVID-19 [Recovered/Resolved]
  - COVID-19 [Not Recovered/Not Resolved]

NARRATIVE: CASE EVENT DATE: 20210405
